FAERS Safety Report 5480118-5 (Version None)
Quarter: 2007Q4

REPORT INFORMATION
  Report Type: 
  Country: None (occurrence: None)
  Receive Date: 20071009
  Receipt Date: 20070927
  Transmission Date: 20080405
  Serious: Yes (Hospitalization)
  Sender: FDA-Public Use
  Company Number: PHHO2006BR21299

PATIENT
  Age: 52 Year
  Sex: Female
  Weight: 46.5 kg

DRUGS (2)
  1. CERTICAN [Suspect]
     Indication: RENAL TRANSPLANT
     Dosage: 360 MG, BID
     Route: 048
     Dates: start: 20060914
  2. CERTICAN [Suspect]
     Dosage: 1.080 GRAM DAILY
     Route: 048
     Dates: start: 20070914

REACTIONS (5)
  - ABDOMINAL PAIN [None]
  - CYTOMEGALOVIRUS INFECTION [None]
  - DIARRHOEA [None]
  - PYREXIA [None]
  - VOMITING [None]
